FAERS Safety Report 6238793-3 (Version None)
Quarter: 2009Q2

REPORT INFORMATION
  Report Type: 
  Country: None (occurrence: None)
  Receive Date: 20090622
  Receipt Date: 20090616
  Transmission Date: 20091009
  Serious: Yes (Hospitalization)
  Sender: FDA-Public Use
  Company Number: KP-WATSON-2009-04529

PATIENT
  Age: 43 Year
  Sex: Male

DRUGS (1)
  1. METRONIDAZOLE [Suspect]
     Indication: PERITONEAL ABSCESS
     Dosage: 1.5 G, DAILY

REACTIONS (2)
  - CEREBELLAR ATAXIA [None]
  - ENCEPHALOPATHY [None]
